FAERS Safety Report 8537603-9 (Version None)
Quarter: 2012Q3

REPORT INFORMATION
  Report Type: 
  Country: None (occurrence: None)
  Receive Date: 20120725
  Receipt Date: 20120717
  Transmission Date: 20120928
  Serious: Yes (Hospitalization)
  Sender: FDA-Public Use
  Company Number: HU-JNJFOC-20120709333

PATIENT
  Age: 51 Year
  Sex: Female

DRUGS (2)
  1. XARELTO [Suspect]
     Indication: HIP SURGERY
     Route: 065
  2. XARELTO [Suspect]
     Indication: THROMBOSIS PROPHYLAXIS
     Route: 065

REACTIONS (2)
  - URTICARIA [None]
  - DERMATITIS ALLERGIC [None]
